FAERS Safety Report 18533941 (Version 1)
Quarter: 2020Q4

REPORT INFORMATION
  Report Type: Spontaneous
  Country: US (occurrence: US)
  Receive Date: 20201122
  Receipt Date: 20201122
  Transmission Date: 20210114
  Serious: No
  Sender: FDA-Public Use
  Company Number: None

PATIENT
  Age: 59 Year
  Sex: Male
  Weight: 110.25 kg

DRUGS (11)
  1. CEPHALEXIN. [Suspect]
     Active Substance: CEPHALEXIN
     Indication: ORAL SURGERY
     Dosage: ?          QUANTITY:1 CAPSULE(S);?
     Route: 048
     Dates: start: 20201027, end: 20201031
  2. PREDNISONE. [Concomitant]
     Active Substance: PREDNISONE
  3. ATORVASTATIN [Concomitant]
     Active Substance: ATORVASTATIN
  4. HYDROCHLOROTHIAIDE 25MG [Concomitant]
  5. BANOPHEN [Concomitant]
     Active Substance: DIPHENHYDRAMINE HYDROCHLORIDE
  6. PEPCID [Concomitant]
     Active Substance: FAMOTIDINE
  7. ATENOLOL 50MG [Concomitant]
     Active Substance: ATENOLOL
  8. XYZAL [Concomitant]
     Active Substance: LEVOCETIRIZINE DIHYDROCHLORIDE
  9. CLINDAMYCIN 300MG [Concomitant]
     Active Substance: CLINDAMYCIN PHOSPHATE
  10. TUMERIC 900G [Concomitant]
  11. AMLODIPINE BESYLATE. [Concomitant]
     Active Substance: AMLODIPINE BESYLATE

REACTIONS (5)
  - Rash macular [None]
  - Pruritus [None]
  - Nausea [None]
  - Hypersensitivity [None]
  - Dysphagia [None]

NARRATIVE: CASE EVENT DATE: 20201030
